FAERS Safety Report 8710161 (Version 9)
Quarter: 2013Q3

REPORT INFORMATION
  Report Type: Report from Study
  Country: JP (occurrence: JP)
  Receive Date: 20120806
  Receipt Date: 20130829
  Transmission Date: 20140515
  Serious: Yes (Hospitalization)
  Sender: FDA-Public Use
  Company Number: JP-MERCK-1207JPN011120

PATIENT
  Age: 51 Year
  Sex: Female
  Weight: 52.3 kg

DRUGS (16)
  1. PEGINTRON [Suspect]
     Indication: CHRONIC HEPATITIS C
     Dosage: 80 MICROGRAM PER KILOGRAM, QW = 1.5 UG/KG
     Route: 058
     Dates: start: 20120110, end: 20120719
  2. REBETOL [Suspect]
     Indication: CHRONIC HEPATITIS C
     Dosage: 2 DF, ONCE
     Route: 048
     Dates: start: 20120110, end: 20120110
  3. REBETOL [Suspect]
     Dosage: 3 DF, QD
     Route: 048
     Dates: start: 20120111, end: 20120404
  4. REBETOL [Suspect]
     Dosage: 2 DF, UNK
     Route: 048
     Dates: start: 20120405, end: 20120405
  5. REBETOL [Suspect]
     Dosage: 3 DF, UNK
     Route: 048
     Dates: start: 20120406, end: 20120516
  6. REBETOL [Suspect]
     Dosage: 2 DF, UNK
     Route: 048
     Dates: start: 20120517, end: 20120530
  7. REBETOL [Suspect]
     Dosage: 3 DF, QD
     Route: 048
     Dates: start: 20120531, end: 20120718
  8. REBETOL [Suspect]
     Dosage: 2 DF, QD
     Route: 048
     Dates: start: 20120719, end: 20120723
  9. REBETOL [Suspect]
     Dosage: 1 DF, QD
     Route: 048
     Dates: start: 20120724, end: 20120724
  10. PLACEBO [Suspect]
     Indication: CHRONIC HEPATITIS C
     Dosage: UNK UNK, QD
     Route: 048
     Dates: start: 20120110, end: 20120110
  11. PLACEBO [Suspect]
     Dosage: 4 DF, QD
     Route: 048
     Dates: start: 20120111, end: 20120404
  12. PLACEBO [Suspect]
     Dosage: 2 DF, UNK
     Route: 048
     Dates: start: 20120405, end: 20120405
  13. PLACEBO [Suspect]
     Dosage: 4 UNK, UNK
     Route: 048
     Dates: start: 20120406, end: 20120620
  14. LOXOPROFEN [Concomitant]
     Indication: STOMATITIS
     Dosage: UNK MG, PRN
     Route: 048
     Dates: start: 20120110, end: 20120805
  15. LOXOPROFEN [Concomitant]
     Indication: PYREXIA
  16. REBAMIPIDE [Concomitant]
     Indication: GASTRITIS PROPHYLAXIS
     Dosage: UNK MG, PRN
     Route: 048
     Dates: start: 20120223, end: 20120805

REACTIONS (1)
  - Sudden hearing loss [Recovering/Resolving]
